FAERS Safety Report 9385722 (Version 2)
Quarter: 2013Q3

REPORT INFORMATION
  Report Type: Report from Study
  Country: DE (occurrence: DE)
  Receive Date: 20130705
  Receipt Date: 20130822
  Transmission Date: 20140515
  Serious: Yes (Hospitalization)
  Sender: FDA-Public Use
  Company Number: DE-BRISTOL-MYERS SQUIBB COMPANY-19055532

PATIENT
  Age: 51 Year
  Sex: Female

DRUGS (13)
  1. PACLITAXEL [Suspect]
     Indication: BREAST CANCER
     Route: 042
     Dates: start: 20130430
  2. TRASTUZUMAB [Suspect]
     Indication: BREAST CANCER
     Route: 042
     Dates: start: 20130430
  3. PERTUZUMAB [Suspect]
     Indication: BREAST CANCER
     Route: 042
     Dates: start: 20130430
  4. BISOPROLOL [Concomitant]
     Dates: start: 2011
  5. DEXAMETHASONE [Concomitant]
     Dates: start: 20130508
  6. RANITIC [Concomitant]
     Dates: start: 20130430
  7. TAVEGIL [Concomitant]
     Dates: start: 20130430
  8. ONDANSETRON [Concomitant]
     Dates: start: 20130430
  9. MCP [Concomitant]
     Dates: start: 20130430
  10. IBUPROFEN [Concomitant]
     Dates: start: 20130430
  11. CIPROFLOXACIN [Concomitant]
     Route: 042
  12. PERFALGAN [Concomitant]
     Indication: PAIN
  13. NOVALGIN [Concomitant]
     Indication: PAIN

REACTIONS (2)
  - Pyrexia [Unknown]
  - Stomatitis [Unknown]
